FAERS Safety Report 8216415-X (Version None)
Quarter: 2012Q1

REPORT INFORMATION
  Report Type: 
  Country: None (occurrence: None)
  Receive Date: 20120316
  Receipt Date: 20120312
  Transmission Date: 20120608
  Serious: No
  Sender: FDA-Public Use
  Company Number: PHEH2012US003270

PATIENT
  Sex: Female

DRUGS (2)
  1. TASIGNA [Suspect]
     Indication: CHRONIC MYELOID LEUKAEMIA
     Dosage: 300 MG, BID
     Route: 048
     Dates: start: 20120204
  2. CYMBALTA [Concomitant]
     Indication: DEPRESSION

REACTIONS (7)
  - BACK PAIN [None]
  - PRODUCTIVE COUGH [None]
  - RESPIRATORY TRACT CONGESTION [None]
  - WHEEZING [None]
  - FATIGUE [None]
  - BRONCHITIS VIRAL [None]
  - BONE PAIN [None]
